FAERS Safety Report 7149467-9 (Version None)
Quarter: 2010Q4

REPORT INFORMATION
  Report Type: 
  Country: None (occurrence: None)
  Receive Date: 20101209
  Receipt Date: 20101117
  Transmission Date: 20110411
  Serious: No
  Sender: FDA-Public Use
  Company Number: US-PFIZER INC-2010153551

PATIENT
  Age: 76 Year
  Sex: Male
  Weight: 225 kg

DRUGS (5)
  1. ADVIL [Suspect]
     Indication: PAIN
     Dosage: 1 DF, UNK
     Route: 048
     Dates: start: 20100101, end: 20100101
  2. ZETIA [Concomitant]
     Indication: BLOOD CHOLESTEROL INCREASED
  3. PRAVASTATIN [Concomitant]
  4. LOMOTIL [Concomitant]
  5. VITAMINS [Concomitant]

REACTIONS (1)
  - ABDOMINAL PAIN UPPER [None]
